FAERS Safety Report 13527778 (Version 3)
Quarter: 2017Q2

REPORT INFORMATION
  Report Type: Spontaneous
  Country: US (occurrence: US)
  Receive Date: 20170509
  Receipt Date: 20170629
  Transmission Date: 20170830
  Serious: Yes (Other)
  Sender: FDA-Public Use
  Company Number: US-PURDUE-USA-2017-0138721

PATIENT
  Sex: Female

DRUGS (2)
  1. PERI-COLACE [Suspect]
     Active Substance: CASANTHRANOL\DOCUSATE SODIUM
     Dosage: 3 TABLET, SINGLE
     Route: 048
     Dates: start: 20170516, end: 20170516
  2. PERI-COLACE [Suspect]
     Active Substance: CASANTHRANOL\DOCUSATE SODIUM
     Indication: CONSTIPATION
     Dosage: UNK
     Route: 048
     Dates: start: 1999

REACTIONS (3)
  - Corneal transplant [Unknown]
  - Visual impairment [Unknown]
  - Corneal disorder [Unknown]

NARRATIVE: CASE EVENT DATE: 2012
